FAERS Safety Report 5680010-7 (Version None)
Quarter: 2008Q1

REPORT INFORMATION
  Report Type: 
  Country: None (occurrence: None)
  Receive Date: 20080325
  Receipt Date: 20080325
  Transmission Date: 20080703
  Serious: No
  Sender: FDA-Public Use
  Company Number: None

PATIENT
  Age: 50 Year
  Sex: Male

DRUGS (1)
  1. STA HARD [Suspect]

REACTIONS (4)
  - BURNING SENSATION [None]
  - MALE SEXUAL DYSFUNCTION [None]
  - NO THERAPEUTIC RESPONSE [None]
  - RASH [None]
